FAERS Safety Report 7898589-3 (Version None)
Quarter: 2011Q4

REPORT INFORMATION
  Report Type: 
  Country: None (occurrence: None)
  Receive Date: 20111107
  Receipt Date: 20111010
  Transmission Date: 20120403
  Serious: No
  Sender: FDA-Public Use
  Company Number: US-BAYER-2011-102763

PATIENT
  Age: 63 Year
  Sex: Female

DRUGS (1)
  1. NAPROXEN SODIUM [Suspect]

REACTIONS (1)
  - ASTHMA [None]
